FAERS Safety Report 10238583 (Version 2)
Quarter: 2014Q4

REPORT INFORMATION
  Report Type: Spontaneous
  Country: IT (occurrence: IT)
  Receive Date: 20140616
  Receipt Date: 20141010
  Transmission Date: 20150528
  Serious: Yes (Death, Congenital Anomaly)
  Sender: FDA-Public Use
  Company Number: IT-ABBVIE-14P-083-1248121-00

PATIENT

DRUGS (2)
  1. KLACID [Suspect]
     Active Substance: CLARITHROMYCIN
     Indication: MATERNAL EXPOSURE TIMING UNSPECIFIED
     Route: 064
  2. GARDENALE [Suspect]
     Active Substance: PHENOBARBITAL
     Indication: MATERNAL EXPOSURE TIMING UNSPECIFIED
     Route: 064

REACTIONS (4)
  - Abortion induced [Fatal]
  - Foetal malformation [Fatal]
  - Foetal exposure during pregnancy [Unknown]
  - Abdominal wall anomaly [Fatal]

NARRATIVE: CASE EVENT DATE: 20140430
